FAERS Safety Report 13452973 (Version 2)
Quarter: 2017Q2

REPORT INFORMATION
  Report Type: Spontaneous
  Country: ES (occurrence: ES)
  Receive Date: 20170418
  Receipt Date: 20170608
  Transmission Date: 20170830
  Serious: Yes (Death)
  Sender: FDA-Public Use
  Company Number: ES-009507513-1704ESP007006

PATIENT
  Age: 68 Year
  Sex: Female

DRUGS (3)
  1. VANCOMYCIN [Concomitant]
     Active Substance: VANCOMYCIN
     Indication: PRODUCT USED FOR UNKNOWN INDICATION
     Dosage: 250 MG, Q8H
     Route: 048
  2. FIDAXOMICIN [Suspect]
     Active Substance: FIDAXOMICIN
     Indication: PRODUCT USED FOR UNKNOWN INDICATION
     Dosage: 200 MG, Q12H
     Route: 048
  3. VANCOMYCIN [Concomitant]
     Active Substance: VANCOMYCIN
     Dosage: 250 MG, Q8H
     Route: 048

REACTIONS (2)
  - Diarrhoea [Fatal]
  - Drug ineffective [Unknown]

NARRATIVE: CASE EVENT DATE: 201605
